FAERS Safety Report 10957561 (Version 1)
Quarter: 2015Q1

REPORT INFORMATION
  Report Type: Spontaneous
  Country: US (occurrence: None)
  Receive Date: 20150325
  Receipt Date: 20150325
  Transmission Date: 20150721
  Serious: No
  Sender: FDA-Public Use
  Company Number: None

PATIENT
  Age: 78 Year
  Sex: Male
  Weight: 81.65 kg

DRUGS (12)
  1. MORPHINE [Concomitant]
     Active Substance: MORPHINE
  2. LOVASTATIN. [Concomitant]
     Active Substance: LOVASTATIN
  3. AMLODOMINE [Concomitant]
  4. ATENOLOL. [Concomitant]
     Active Substance: ATENOLOL
  5. MELOXICAM. [Concomitant]
     Active Substance: MELOXICAM
  6. FINASTERIDE 5MG TABLETS [Suspect]
     Active Substance: FINASTERIDE
     Indication: PROSTATIC DISORDER
     Dosage: 1 PILL 1 EVERY OTHER DAY MOUTH
     Route: 048
     Dates: end: 20150305
  7. LOVASTATIN. [Concomitant]
     Active Substance: LOVASTATIN
  8. VITAMIN D [Concomitant]
     Active Substance: CHOLECALCIFEROL
  9. ASPERIN [Concomitant]
  10. JANUVIA [Concomitant]
     Active Substance: SITAGLIPTIN PHOSPHATE
  11. OXYCODONE ACETA. [Concomitant]
  12. OMEPRAZOLE. [Concomitant]
     Active Substance: OMEPRAZOLE

REACTIONS (1)
  - Gynaecomastia [None]
